FAERS Safety Report 14942738 (Version 2)
Quarter: 2018Q4

REPORT INFORMATION
  Report Type: Spontaneous
  Country: FR (occurrence: FR)
  Receive Date: 20180528
  Receipt Date: 20181227
  Transmission Date: 20190204
  Serious: Yes (Other)
  Sender: FDA-Public Use
  Company Number: FR-MERCK KGAA-2048531

PATIENT
  Age: 68 Year
  Sex: Female

DRUGS (1)
  1. EUTHYROX [Suspect]
     Active Substance: LEVOTHYROXINE SODIUM
     Indication: PRODUCT USED FOR UNKNOWN INDICATION
     Dates: start: 201707, end: 201710

REACTIONS (21)
  - Irritability [None]
  - Marital problem [None]
  - Type V hyperlipidaemia [None]
  - Blood triglycerides increased [None]
  - Blood cholesterol increased [None]
  - C-reactive protein increased [None]
  - Social problem [None]
  - Decreased interest [None]
  - Pain [None]
  - Mean cell haemoglobin decreased [None]
  - Decreased activity [None]
  - Low density lipoprotein increased [None]
  - Nausea [Recovered/Resolved]
  - Arthralgia [None]
  - Anxiety [Recovered/Resolved]
  - Hypothyroidism [None]
  - Haematocrit increased [None]
  - Alopecia [Recovered/Resolved]
  - Fatigue [Recovered/Resolved]
  - Dizziness [Recovered/Resolved]
  - Blood thyroid stimulating hormone increased [Recovered/Resolved]

NARRATIVE: CASE EVENT DATE: 201707
